FAERS Safety Report 5280625-4 (Version None)
Quarter: 2007Q1

REPORT INFORMATION
  Report Type: 
  Country: None (occurrence: None)
  Receive Date: 20070329
  Receipt Date: 20070321
  Transmission Date: 20070707
  Serious: Yes (Other)
  Sender: FDA-Public Use
  Company Number: 2007UW05589

PATIENT
  Age: 62 Year
  Sex: Female
  Weight: 68 kg

DRUGS (6)
  1. ARIMIDEX [Suspect]
     Indication: BREAST CANCER
     Route: 048
     Dates: start: 20040101
  2. A LOT OF BLOOD PRESSURE MEDICATION [Concomitant]
  3. DIOVAN [Concomitant]
  4. NORVASC [Concomitant]
  5. SOMETHING THAT BEGINS WITH A B [Concomitant]
  6. LIPITOR [Concomitant]

REACTIONS (3)
  - AMNESIA [None]
  - HOT FLUSH [None]
  - PAIN [None]
